FAERS Safety Report 6737580-7 (Version None)
Quarter: 2010Q2

REPORT INFORMATION
  Report Type: 
  Country: None (occurrence: None)
  Receive Date: 20100524
  Receipt Date: 20100517
  Transmission Date: 20101027
  Serious: Yes (Other)
  Sender: FDA-Public Use
  Company Number: US-ASTRAZENECA-2007UW06362

PATIENT
  Age: 29 Year
  Sex: Female
  Weight: 124.3 kg

DRUGS (40)
  1. SEROQUEL [Suspect]
     Indication: AFFECTIVE DISORDER
     Dosage: 25 MG TO 200 MG
     Route: 048
     Dates: start: 20011226
  2. SEROQUEL [Suspect]
     Indication: PSYCHOTIC DISORDER
     Dosage: 25 MG TO 200 MG
     Route: 048
     Dates: start: 20011226
  3. SEROQUEL [Suspect]
     Dosage: 25 MG TO 200 MG
     Route: 048
     Dates: start: 20030901, end: 20060101
  4. SEROQUEL [Suspect]
     Dosage: 25 MG TO 200 MG
     Route: 048
     Dates: start: 20030901, end: 20060101
  5. SEROQUEL [Suspect]
     Dosage: 25 MG,100 MG(DISPENSED)
     Route: 048
     Dates: start: 20061014
  6. SEROQUEL [Suspect]
     Dosage: 25 MG,100 MG(DISPENSED)
     Route: 048
     Dates: start: 20061014
  7. SEROQUEL [Suspect]
     Route: 048
     Dates: start: 20070101
  8. SEROQUEL [Suspect]
     Route: 048
     Dates: start: 20070101
  9. SEROQUEL [Suspect]
     Route: 048
     Dates: start: 20100101
  10. SEROQUEL [Suspect]
     Route: 048
     Dates: start: 20100101
  11. RISPERDAL [Concomitant]
     Dosage: 0.5 MG TO 1 MG
     Dates: start: 20030901
  12. ZYPREXA [Concomitant]
     Dates: start: 20060101
  13. ABILIFY [Concomitant]
     Dates: start: 20030101
  14. GEODON [Concomitant]
     Dates: start: 20070101
  15. HALDOL [Concomitant]
     Dates: start: 20070101
  16. TRILAFON [Concomitant]
     Dates: start: 20070101
  17. TRAZODONE HCL [Concomitant]
     Dates: start: 20070101
  18. EFFEXOR [Concomitant]
     Dates: start: 20070101
  19. WELLBUTRIN [Concomitant]
  20. AMBIEN [Concomitant]
  21. SINGULAIR [Concomitant]
     Dates: start: 20060328
  22. SINGULAIR [Concomitant]
     Route: 048
     Dates: start: 20060921
  23. SINGULAIR [Concomitant]
     Dates: start: 20070101
  24. CELEXA [Concomitant]
     Dosage: 10 MG TO 40 MG
     Route: 048
     Dates: start: 20010915
  25. CLONAZEPAM [Concomitant]
     Route: 048
     Dates: start: 20010915
  26. ALLEGRA [Concomitant]
     Route: 048
     Dates: start: 20011226
  27. PREVACID [Concomitant]
     Route: 048
     Dates: start: 20011226
  28. LAMICTAL [Concomitant]
     Route: 048
     Dates: start: 20020110
  29. TOPAMAX [Concomitant]
     Route: 048
     Dates: start: 20021004
  30. DEPAKOTE [Concomitant]
     Route: 048
     Dates: start: 20040402
  31. METFORMIN HCL [Concomitant]
     Dates: start: 20070101
  32. ACTOS [Concomitant]
     Dates: start: 20070725
  33. ATENOLOL [Concomitant]
     Dates: start: 20070725
  34. LISINOPRIL [Concomitant]
     Dates: start: 20070725
  35. COLESTID [Concomitant]
     Dates: start: 20070725
  36. MIRTAZAPINE [Concomitant]
     Dates: start: 20070725
  37. MECLIZINE [Concomitant]
     Dates: start: 20070725
  38. ALBUTEROL [Concomitant]
     Dosage: PRN
     Dates: start: 20070101
  39. BUSPAR [Concomitant]
     Dates: start: 20070101
  40. PERCOCET [Concomitant]
     Dosage: PRN
     Dates: start: 20070101

REACTIONS (4)
  - BLOOD CHOLESTEROL INCREASED [None]
  - BLOOD TRIGLYCERIDES INCREASED [None]
  - DIABETIC NEUROPATHY [None]
  - TYPE 2 DIABETES MELLITUS [None]
